FAERS Safety Report 11266158 (Version 2)
Quarter: 2015Q3

REPORT INFORMATION
  Report Type: Report from Study
  Country: US (occurrence: US)
  Receive Date: 20150713
  Receipt Date: 20150923
  Transmission Date: 20151125
  Serious: Yes (Other)
  Sender: FDA-Public Use
  Company Number: US-ALLERGAN-1512415CX

PATIENT
  Age: 57 Year
  Sex: Male

DRUGS (3)
  1. SKINMEDICA TOTAL DEFENSE + REPAIR SPF 34, UNTINTED [Suspect]
     Active Substance: OCTINOXATE\ZINC OXIDE
     Indication: PROPHYLAXIS
     Dosage: UNK
     Route: 061
     Dates: start: 20150410, end: 20150626
  2. SKINMEDICA FACIAL CLEANSER [Concomitant]
     Active Substance: COSMETICS
     Indication: PROPHYLAXIS
     Route: 061
  3. SKINMEDICA ULTRA SHEER MOISTURIZER [Concomitant]
     Active Substance: COSMETICS
     Indication: PROPHYLAXIS
     Route: 061

REACTIONS (2)
  - Malignant melanoma [Recovered/Resolved]
  - Basal cell carcinoma [Recovered/Resolved]

NARRATIVE: CASE EVENT DATE: 20150618
